FAERS Safety Report 11598425 (Version 1)
Quarter: 2015Q4

REPORT INFORMATION
  Report Type: Spontaneous
  Country: US (occurrence: None)
  Receive Date: 20151006
  Receipt Date: 20151006
  Transmission Date: 20160304
  Serious: Yes (Other)
  Sender: FDA-Public Use
  Company Number: ADR-2015-01325

PATIENT
  Age: 49 Year
  Sex: Male

DRUGS (2)
  1. BUPIVACAINE INTRATHECAL; SEE B5 [Suspect]
     Active Substance: BUPIVACAINE
     Dosage: 2.793 MG/DAY
  2. BACLOFEN INTRATHECAL; SEE B5 [Suspect]
     Active Substance: BACLOFEN
     Indication: PAIN
     Dosage: 130.34 MCG/DAY

REACTIONS (6)
  - Medical device site cellulitis [None]
  - Product contamination physical [None]
  - Pain [None]
  - Device occlusion [None]
  - Drug withdrawal syndrome [None]
  - Medical device site swelling [None]
